FAERS Safety Report 8124529-8 (Version None)
Quarter: 2012Q1

REPORT INFORMATION
  Report Type: 
  Country: None (occurrence: None)
  Receive Date: 20120209
  Receipt Date: 20120130
  Transmission Date: 20120608
  Serious: Yes (Death)
  Sender: FDA-Public Use
  Company Number: DE-AMGEN-DEUSP2010013453

PATIENT
  Age: 78 Year
  Sex: Male

DRUGS (3)
  1. ARANESP [Suspect]
     Dosage: 40 MUG, QWK
  2. BISPROLOL COMP [Concomitant]
  3. ARANESP [Suspect]
     Indication: PRODUCT USED FOR UNKNOWN INDICATION
     Dosage: 80 MUG, QWK

REACTIONS (6)
  - CARDIAC FAILURE ACUTE [None]
  - DRUG INTERACTION [None]
  - ACUTE CORONARY SYNDROME [None]
  - ANAEMIA [None]
  - DRUG INEFFECTIVE [None]
  - ANGIOPATHY [None]
